FAERS Safety Report 17824549 (Version 6)
Quarter: 2020Q3

REPORT INFORMATION
  Report Type: Spontaneous
  Country: GB (occurrence: GB)
  Receive Date: 20200526
  Receipt Date: 20200724
  Transmission Date: 20201102
  Serious: Yes (Hospitalization, Other)
  Sender: FDA-Public Use
  Company Number: GB-SA-2020SA131437

PATIENT

DRUGS (43)
  1. THYMOGLOBULINE [Suspect]
     Active Substance: LAPINE T-LYMPHOCYTE IMMUNE GLOBULIN
     Dosage: UNK (QUANTITY DISPENSED 12X25MG)
  2. VITAMIN B12 [VITAMIN B12 NOS] [Concomitant]
     Active Substance: CYANOCOBALAMIN
     Indication: SUPPLEMENTATION THERAPY
  3. LANSOPRAZOLE. [Concomitant]
     Active Substance: LANSOPRAZOLE
     Indication: TRANSPLANT
     Dosage: 30 MG, QD, GASTRIC PROTECTION
     Route: 048
     Dates: start: 20190907, end: 20190920
  4. VITAMIN K [Concomitant]
     Active Substance: PHYTONADIONE
     Indication: COAGULOPATHY
     Dosage: 10 MG
     Route: 042
     Dates: start: 20190923, end: 20190923
  5. TAZOCIN [Concomitant]
     Active Substance: PIPERACILLIN SODIUM\TAZOBACTAM SODIUM
     Indication: TRANSPLANT
     Dosage: 4.5 G, TID
     Route: 042
     Dates: start: 20190910, end: 20190920
  6. FUROSEMIDE. [Concomitant]
     Active Substance: FUROSEMIDE
     Indication: TRANSPLANT
     Dosage: 40 MG, DIURETIC
     Route: 048
     Dates: start: 20190912, end: 20190912
  7. G?CSF [Concomitant]
     Active Substance: GRANULOCYTE COLONY-STIMULATING FACTOR NOS
     Indication: AUTOLOGOUS HAEMATOPOIETIC STEM CELL TRANSPLANT
     Dosage: 300 UG
     Dates: start: 20190918
  8. THYMOGLOBULINE [Suspect]
     Active Substance: LAPINE T-LYMPHOCYTE IMMUNE GLOBULIN
     Dosage: UNK (QUANTITY DISPENSED 10X25MG)
  9. VITAMIN B12 [VITAMIN B12 NOS] [Concomitant]
     Active Substance: CYANOCOBALAMIN
     Indication: CROHN^S DISEASE
     Dosage: UNK (12 WEEKLY)
     Route: 058
     Dates: start: 201906
  10. ONDANSETRON [Concomitant]
     Active Substance: ONDANSETRON
     Indication: TRANSPLANT
     Dosage: 8 MG, BID, ANTI?SICKNESS
     Route: 048
     Dates: start: 20190906, end: 20190915
  11. PREDNISOLONE. [Concomitant]
     Active Substance: PREDNISOLONE
     Dosage: 15 MG, QD, STEROID
     Route: 048
     Dates: start: 20190924, end: 20190926
  12. PARACETAMOL [Concomitant]
     Active Substance: ACETAMINOPHEN
     Indication: TRANSPLANT
     Dosage: 1 G, PRN
     Route: 048
     Dates: start: 20190910, end: 20190920
  13. MESNA. [Concomitant]
     Active Substance: MESNA
     Indication: AUTOLOGOUS HAEMATOPOIETIC STEM CELL TRANSPLANT
     Dosage: 14.8 G, TOTAL
     Dates: start: 20190910
  14. AMIKACIN. [Concomitant]
     Active Substance: AMIKACIN
     Indication: TRANSPLANT
     Dosage: 1 G, ANTIBIOTIC
     Route: 042
     Dates: start: 20190910, end: 20190911
  15. INHIXA [Concomitant]
     Active Substance: ENOXAPARIN SODIUM
     Indication: TRANSPLANT
     Dosage: UNK, QD (4X0 MG, THROMBOPROPHYLAXIS)
     Route: 048
     Dates: start: 20190907, end: 20190919
  16. CAPHOSOL [CALCIUM CHLORIDE;SODIUM CHLORIDE;SODIUM PHOSPHATE DIBASIC;SO [Concomitant]
     Indication: TRANSPLANT
     Dosage: 30 ML, QID, MOUTHWASH
     Dates: start: 20190907, end: 20190920
  17. PREDNISOLONE. [Concomitant]
     Active Substance: PREDNISOLONE
     Dosage: 15 MG, QD, WEANING
     Route: 048
     Dates: start: 20200219, end: 20200222
  18. PREDNISOLONE. [Concomitant]
     Active Substance: PREDNISOLONE
     Dosage: 10 MG, QD, WEANING
     Route: 048
     Dates: start: 20200223, end: 20200229
  19. SANDO K [POTASSIUM BICARBONATE;POTASSIUM CHLORIDE] [Concomitant]
     Active Substance: POTASSIUM BICARBONATE\POTASSIUM CHLORIDE
     Indication: TRANSPLANT
     Dosage: 1200 MG, TID
     Route: 048
     Dates: start: 20190912, end: 20190916
  20. ALTEPLASE. [Concomitant]
     Active Substance: ALTEPLASE
     Indication: TRANSPLANT
     Dosage: 2 ML, PRN, PICC LINE BLOCKAGE
     Route: 042
     Dates: start: 20190912, end: 20190912
  21. PHOSPHATE SANDOZ [Concomitant]
     Active Substance: SODIUM PHOSPHATE, MONOBASIC, ANHYDROUS
     Indication: TRANSPLANT
     Dosage: 2 DF, BID
     Route: 048
     Dates: start: 20190926, end: 20191002
  22. AZATHIOPRINE. [Concomitant]
     Active Substance: AZATHIOPRINE
     Indication: CROHN^S DISEASE
     Dosage: 100 MG, QD
     Route: 048
     Dates: start: 201906
  23. DOMPERIDONE [Concomitant]
     Active Substance: DOMPERIDONE
     Indication: TRANSPLANT
     Dosage: 10 MG, TID, ANTI SICKNESS
     Route: 048
     Dates: start: 20190906, end: 20190920
  24. ACICLOVIR [Concomitant]
     Active Substance: ACYCLOVIR
     Indication: TRANSPLANT
     Dosage: 400 MG, BID, ANTIBIOTIC PROPHYLAXIS
     Route: 048
     Dates: start: 20190906
  25. PREDNISOLONE. [Concomitant]
     Active Substance: PREDNISOLONE
     Indication: TRANSPLANT
     Dosage: 65 MG, QD, SICKNESS
     Route: 048
     Dates: start: 20190903, end: 20190920
  26. HYDROCORTISONE. [Concomitant]
     Active Substance: HYDROCORTISONE
     Dosage: 200 MG, QD, STEROID
     Route: 042
     Dates: start: 20190923, end: 20190923
  27. LEVOMEPROMAZINE [Concomitant]
     Active Substance: LEVOMEPROMAZINE
     Indication: TRANSPLANT
     Dosage: 6 MG, BID, ANTI SICKNESS
     Route: 058
     Dates: start: 20190911, end: 20190920
  28. LEVOMEPROMAZINE [Concomitant]
     Active Substance: LEVOMEPROMAZINE
     Dosage: 6 MG, PRN (ANTI SICKNESS)
     Route: 058
     Dates: start: 20190930, end: 20190930
  29. DERMOL [CLOBETASOL PROPIONATE] [Concomitant]
     Indication: FOLLICULITIS
     Dosage: UNK UNK, BID
     Route: 061
     Dates: start: 202002
  30. ZARZIO [Concomitant]
     Active Substance: FILGRASTIM
     Indication: NEUTROPENIA
     Dosage: 300 MG
     Route: 058
     Dates: start: 20200217, end: 20200220
  31. PREDNISOLONE. [Concomitant]
     Active Substance: PREDNISOLONE
     Dosage: 5 MG, QD, WEANING
     Route: 048
     Dates: start: 20200301, end: 20200307
  32. PETHIDINE [Concomitant]
     Active Substance: MEPERIDINE
     Indication: TRANSPLANT
     Dosage: 25 MG, PRN, PAIN
     Route: 042
     Dates: start: 20190910, end: 20190911
  33. AMILORIDE [Concomitant]
     Active Substance: AMILORIDE
     Indication: DIURETIC THERAPY
     Dosage: 40 MG
     Route: 048
     Dates: start: 20190913, end: 20190913
  34. AD CALCIS [Concomitant]
     Indication: TRANSPLANT
     Dosage: 1 DF, BID, CALCIUM REPLACEMENT
     Route: 048
     Dates: start: 20190927, end: 20191002
  35. KETOCONAZOLE. [Concomitant]
     Active Substance: KETOCONAZOLE
     Dosage: UNK, QD (ROSACEA RASH TO FACE CREAM)
     Route: 061
     Dates: start: 20200228
  36. METRONIDAZOLE. [Concomitant]
     Active Substance: METRONIDAZOLE
     Dosage: UNK, HS (AT NIGHT, ROSACEA RASH TO FACE 1 CREAM NOCTE: AT NIGHT)
     Route: 061
     Dates: start: 20200228
  37. CYCLOPHOSPHAMIDE. [Concomitant]
     Active Substance: CYCLOPHOSPHAMIDE
     Indication: AUTOLOGOUS HAEMATOPOIETIC STEM CELL TRANSPLANT
     Dosage: 4180 MG + 160MG DEVIATION FROM PER PROTOCOL DOSE
     Dates: start: 20190910
  38. THYMOGLOBULINE [Suspect]
     Active Substance: LAPINE T-LYMPHOCYTE IMMUNE GLOBULIN
     Indication: AUTOLOGOUS HAEMATOPOIETIC STEM CELL TRANSPLANT
     Dosage: 205 MG, QD
     Route: 042
     Dates: start: 20190910, end: 20190913
  39. CHLORPHENAMINE [Concomitant]
     Active Substance: CHLORPHENIRAMINE MALEATE
     Indication: TRANSPLANT
     Dosage: 10 MG, PRN, ALLERGIC REACTION
     Route: 042
     Dates: start: 20190910, end: 20190910
  40. HYDROCORTISONE. [Concomitant]
     Active Substance: HYDROCORTISONE
     Indication: TRANSPLANT
     Dosage: 100 MG, PRN, ALLERGIC REACTION
     Route: 042
     Dates: start: 20190909, end: 20190911
  41. FLUCLOXACILLIN [Concomitant]
     Active Substance: FLUCLOXACILLIN
     Indication: ANTIBIOTIC THERAPY
     Dosage: 1 G, QID, ANTI SICKNESS
     Route: 048
     Dates: start: 20200216, end: 20200223
  42. FEXOFENADINE [Concomitant]
     Active Substance: FEXOFENADINE HYDROCHLORIDE
     Indication: HYPERSENSITIVITY
     Dosage: 180 MG, MORNING
     Route: 048
     Dates: start: 202002
  43. METHYLPREDNISOLONE. [Concomitant]
     Active Substance: METHYLPREDNISOLONE
     Indication: AUTOLOGOUS HAEMATOPOIETIC STEM CELL TRANSPLANT
     Dosage: 138 MG
     Dates: start: 20190910

REACTIONS (4)
  - Neuropathy peripheral [Recovered/Resolved]
  - Renal failure [Unknown]
  - Acute kidney injury [Recovered/Resolved]
  - Optic neuritis [Recovered/Resolved]

NARRATIVE: CASE EVENT DATE: 201911
